FAERS Safety Report 9797967 (Version 2)
Quarter: 2014Q1

REPORT INFORMATION
  Report Type: Report from Study
  Country: FR (occurrence: FR)
  Receive Date: 20140106
  Receipt Date: 20140108
  Transmission Date: 20141002
  Serious: Yes (Other)
  Sender: FDA-Public Use
  Company Number: PHHY2014FR000624

PATIENT
  Age: 66 Year
  Sex: Female
  Weight: 65 kg

DRUGS (5)
  1. ACLASTA/ZOLEDRONATE [Suspect]
     Indication: OSTEOPOROSIS
     Dosage: 5 MG, UNK
     Route: 065
     Dates: start: 20111110
  2. MIANSERIN [Concomitant]
     Dosage: UNK UKN, UNK
     Dates: start: 2009
  3. EFFEXOR [Concomitant]
     Dosage: UNK UKN, UNK
     Dates: start: 2008, end: 201303
  4. DIACEREIN [Concomitant]
     Dosage: UNK UKN, UNK
     Dates: end: 2013
  5. ART 50 [Concomitant]
     Dosage: 50 UKN, UNK
     Dates: start: 2013

REACTIONS (4)
  - Osteonecrosis of jaw [Not Recovered/Not Resolved]
  - Toothache [Unknown]
  - Osteoarthritis [Recovered/Resolved]
  - Osteoporosis [Not Recovered/Not Resolved]
